FAERS Safety Report 18374274 (Version 7)
Quarter: 2023Q1

REPORT INFORMATION
  Report Type: Other
  Country: CA (occurrence: None)
  Receive Date: 20201012
  Receipt Date: 20230112
  Transmission Date: 20230418
  Serious: Yes (Other)
  Sender: FDA-Public Use
  Company Number: CA-ROCHE-2297959

PATIENT
  Age: 35 Year
  Sex: Female

DRUGS (5)
  1. OCREVUS [Suspect]
     Active Substance: OCRELIZUMAB
     Indication: Relapsing-remitting multiple sclerosis
     Dosage: 300 MG AT DAY 0 + 14, THEN 600 MG Q 6 MONTH,ONGOING
     Route: 042
     Dates: start: 20180926
  2. PREDNISONE [Suspect]
     Active Substance: PREDNISONE
     Indication: Product used for unknown indication
     Route: 065
  3. MESALAMINE [Concomitant]
     Active Substance: MESALAMINE
  4. AZATHIOPRINE [Concomitant]
     Active Substance: AZATHIOPRINE
  5. SALOFALK [Concomitant]

REACTIONS (7)
  - Multiple sclerosis [Unknown]
  - Smear cervix abnormal [Recovered/Resolved]
  - Muscular weakness [Not Recovered/Not Resolved]
  - Herpes zoster [Recovered/Resolved]
  - Cystitis [Unknown]
  - Memory impairment [Not Recovered/Not Resolved]
  - Mobility decreased [Not Recovered/Not Resolved]

NARRATIVE: CASE EVENT DATE: 20181230
